FAERS Safety Report 9786565 (Version 1)
Quarter: 2013Q4

REPORT INFORMATION
  Report Type: Spontaneous
  Country: US (occurrence: US)
  Receive Date: 20131227
  Receipt Date: 20131227
  Transmission Date: 20140711
  Serious: No
  Sender: FDA-Public Use
  Company Number: US-009507513-1312USA004774

PATIENT
  Age: 24 Year
  Sex: Female

DRUGS (2)
  1. HEXADROL TABLETS [Suspect]
     Indication: MENSTRUAL CYCLE MANAGEMENT
     Dosage: 0.25 MG, QOD
  2. HEXADROL TABLETS [Suspect]
     Indication: PROPHYLAXIS

REACTIONS (3)
  - Liver function test abnormal [Unknown]
  - Hepatic steatosis [Unknown]
  - Obsessive-compulsive disorder [Unknown]
